FAERS Safety Report 20934012 (Version 1)
Quarter: 2022Q2

REPORT INFORMATION
  Report Type: Spontaneous
  Country: US (occurrence: US)
  Receive Date: 20220608
  Receipt Date: 20220608
  Transmission Date: 20220720
  Serious: No
  Sender: FDA-Public Use
  Company Number: US-BIOGEN-2022BI01130229

PATIENT
  Sex: Female

DRUGS (1)
  1. TYSABRI [Suspect]
     Active Substance: NATALIZUMAB
     Indication: Product used for unknown indication
     Route: 065

REACTIONS (5)
  - COVID-19 [Unknown]
  - Hypoaesthesia [Unknown]
  - Influenza like illness [Unknown]
  - Back pain [Unknown]
  - Arthralgia [Unknown]
